FAERS Safety Report 23270849 (Version 2)
Quarter: 2023Q4

REPORT INFORMATION
  Report Type: Report from Study
  Country: US (occurrence: US)
  Receive Date: 20231207
  Receipt Date: 20231220
  Transmission Date: 20240110
  Serious: Yes (Hospitalization, Other)
  Sender: FDA-Public Use
  Company Number: US-GILEAD-2023-0653582

PATIENT
  Sex: Female

DRUGS (4)
  1. AMBRISENTAN [Suspect]
     Active Substance: AMBRISENTAN
     Indication: Pulmonary hypertension
     Dosage: 10 MG, QD
     Route: 065
     Dates: start: 20220411
  2. UPTRAVI [Concomitant]
     Active Substance: SELEXIPAG
  3. TADALAFIL [Concomitant]
     Active Substance: TADALAFIL
  4. DILTIAZEM [Concomitant]
     Active Substance: DILTIAZEM

REACTIONS (4)
  - Back pain [Unknown]
  - Fluid retention [Unknown]
  - Spinal fracture [Unknown]
  - Intervertebral disc compression [Unknown]
